FAERS Safety Report 15154602 (Version 1)
Quarter: 2018Q3

REPORT INFORMATION
  Report Type: Spontaneous
  Country: US (occurrence: US)
  Receive Date: 20180619
  Receipt Date: 20180619
  Transmission Date: 20181010
  Serious: Yes (Hospitalization)
  Sender: FDA-Public Use
  Company Number: None

PATIENT
  Age: 76 Year
  Sex: Male
  Weight: 62.8 kg

DRUGS (3)
  1. BENDAMUSTINE [Concomitant]
     Active Substance: BENDAMUSTINE
  2. RITUXIMAB. [Concomitant]
     Active Substance: RITUXIMAB
  3. LIPOSOMAL VINCRISTINE 2.04 MG/M2 [Suspect]
     Active Substance: VINCRISTINE
     Indication: NON-HODGKIN^S LYMPHOMA
     Dosage: ?          OTHER FREQUENCY:Q 4 WEEKS;?
     Route: 042
     Dates: start: 20180530, end: 20180530

REACTIONS (3)
  - Constipation [None]
  - Pyrexia [None]
  - Ileus [None]

NARRATIVE: CASE EVENT DATE: 20180612
